FAERS Safety Report 6183173-2 (Version None)
Quarter: 2009Q2

REPORT INFORMATION
  Report Type: 
  Country: None (occurrence: None)
  Receive Date: 20090507
  Receipt Date: 20090501
  Transmission Date: 20091009
  Serious: Yes (Other)
  Sender: FDA-Public Use
  Company Number: US-JNJFOC-20090500644

PATIENT
  Sex: Male
  Weight: 73.48 kg

DRUGS (11)
  1. DURAGESIC-100 [Suspect]
     Route: 062
  2. DURAGESIC-100 [Suspect]
     Indication: PAIN
     Route: 062
  3. DURAGESIC-100 [Suspect]
     Indication: BACK PAIN
     Dosage: TWO 100 UG/HR PATCHES
     Route: 062
  4. PREVACID [Concomitant]
     Route: 048
  5. PREVACID [Concomitant]
     Indication: GASTRIC DISORDER
     Route: 048
  6. CYMBALTA [Concomitant]
     Indication: FIBROMYALGIA
     Route: 048
  7. KLONOPIN [Concomitant]
     Indication: CONVULSION
     Route: 048
  8. HYDROMORPHONE HCL [Concomitant]
     Dosage: UP TO 4 PER DAY AS NEEDED
     Route: 048
  9. HYDROMORPHONE HCL [Concomitant]
     Indication: BREAKTHROUGH PAIN
     Route: 048
  10. SOMA [Concomitant]
     Indication: PAIN
     Route: 048
  11. CLOZAPINE [Concomitant]
     Indication: EPILEPSY
     Route: 048

REACTIONS (13)
  - ABASIA [None]
  - ABDOMINAL PAIN [None]
  - ABDOMINAL PAIN UPPER [None]
  - ANGINA PECTORIS [None]
  - DRUG INEFFECTIVE [None]
  - EYE PAIN [None]
  - HEADACHE [None]
  - INADEQUATE ANALGESIA [None]
  - INAPPROPRIATE SCHEDULE OF DRUG ADMINISTRATION [None]
  - NAUSEA [None]
  - PAIN [None]
  - TREMOR [None]
  - VOMITING [None]
